FAERS Safety Report 23904180 (Version 2)
Quarter: 2024Q3

REPORT INFORMATION
  Report Type: Spontaneous
  Country: DE (occurrence: DE)
  Receive Date: 20240527
  Receipt Date: 20240730
  Transmission Date: 20241017
  Serious: Yes (Congenital Anomaly)
  Sender: AUROBINDO
  Company Number: DE-AMAROX PHARMA-AMR2024DE01269

PATIENT
  Age: 19 Day
  Sex: Male
  Weight: 2.9 kg

DRUGS (2)
  1. EMTRICITABINE\TENOFOVIR DISOPROXIL [Suspect]
     Active Substance: EMTRICITABINE\TENOFOVIR DISOPROXIL
     Indication: Product used for unknown indication
     Dosage: 445 MILLIGRAM, ONCE DAILY, 1 COURSE
     Route: 064
     Dates: start: 20231114
  2. TIVICAY [Suspect]
     Active Substance: DOLUTEGRAVIR SODIUM
     Indication: Product used for unknown indication
     Dosage: 50 MILLIGRAM, ONCE DAILY, 1 COURSE
     Route: 064
     Dates: start: 20231114

REACTIONS (2)
  - Trisomy 21 [Unknown]
  - Foetal exposure during pregnancy [Unknown]
